FAERS Safety Report 11873304 (Version 1)
Quarter: 2015Q4

REPORT INFORMATION
  Report Type: Spontaneous
  Country: US (occurrence: US)
  Receive Date: 20151228
  Receipt Date: 20151228
  Transmission Date: 20160305
  Serious: Yes (Hospitalization)
  Sender: FDA-Public Use
  Company Number: US-B.I. PHARMACEUTICALS,INC./RIDGEFIELD-2015-BI-71649BP

PATIENT
  Age: 77 Year
  Sex: Male
  Weight: 86 kg

DRUGS (1)
  1. PRADAXA [Suspect]
     Active Substance: DABIGATRAN ETEXILATE MESYLATE
     Indication: ATRIAL FIBRILLATION
     Dosage: 300 MG
     Route: 048
     Dates: start: 201307

REACTIONS (9)
  - Muscle contusion [Unknown]
  - Contusion [Unknown]
  - Wound [Unknown]
  - Musculoskeletal disorder [Unknown]
  - Rash [Unknown]
  - Fatigue [Not Recovered/Not Resolved]
  - Adverse event [Recovered/Resolved]
  - Insomnia [Unknown]
  - Walking aid user [Unknown]

NARRATIVE: CASE EVENT DATE: 201507
